FAERS Safety Report 14871997 (Version 4)
Quarter: 2018Q3

REPORT INFORMATION
  Report Type: Spontaneous
  Country: SK (occurrence: SK)
  Receive Date: 20180509
  Receipt Date: 20180816
  Transmission Date: 20181010
  Serious: Yes (Other)
  Sender: FDA-Public Use
  Company Number: SK-ROCHE-2121382

PATIENT
  Age: 60 Year
  Sex: Male

DRUGS (9)
  1. PREDNISONE. [Suspect]
     Active Substance: PREDNISONE
     Indication: MANTLE CELL LYMPHOMA
     Dosage: LAST DOSE ON SEP/2015
     Route: 065
     Dates: start: 201507
  2. PREDNISONE. [Suspect]
     Active Substance: PREDNISONE
     Indication: MANTLE CELL LYMPHOMA
     Route: 065
     Dates: start: 2012, end: 201509
  3. CYCLOPHOSPHAMIDE. [Suspect]
     Active Substance: CYCLOPHOSPHAMIDE
     Indication: MANTLE CELL LYMPHOMA
     Route: 065
     Dates: start: 201507, end: 201509
  4. RITUXIMAB. [Suspect]
     Active Substance: RITUXIMAB
     Indication: MANTLE CELL LYMPHOMA
     Route: 065
     Dates: start: 2012
  5. ETOPOSIDE. [Suspect]
     Active Substance: ETOPOSIDE
     Indication: MANTLE CELL LYMPHOMA
     Dosage: LAST DOSE IN SEP/2015
     Route: 065
     Dates: start: 201507
  6. VINCRISTINE SULFATE. [Suspect]
     Active Substance: VINCRISTINE SULFATE
     Dosage: LAST DOSE IN SEP/2015
     Route: 065
     Dates: start: 201507
  7. CYCLOPHOSPHAMIDE. [Suspect]
     Active Substance: CYCLOPHOSPHAMIDE
     Indication: MANTLE CELL LYMPHOMA
     Dosage: LAST DOSE IN SEP/2015
     Route: 065
     Dates: start: 2012
  8. RITUXIMAB. [Suspect]
     Active Substance: RITUXIMAB
     Indication: MANTLE CELL LYMPHOMA
     Dosage: LAST DOSE IN SEP/2015
     Route: 065
     Dates: start: 201507
  9. VINCRISTINE SULFATE. [Suspect]
     Active Substance: VINCRISTINE SULFATE
     Indication: MANTLE CELL LYMPHOMA
     Route: 065
     Dates: start: 2012

REACTIONS (9)
  - Off label use [Unknown]
  - Angina pectoris [Unknown]
  - Palpitations [Unknown]
  - Sinusitis [Unknown]
  - Infection [Unknown]
  - Constipation [Unknown]
  - Product use in unapproved indication [Unknown]
  - Stomatitis [Unknown]
  - Tonsillitis [Unknown]

NARRATIVE: CASE EVENT DATE: 2015
